FAERS Safety Report 20656573 (Version 2)
Quarter: 2022Q2

REPORT INFORMATION
  Report Type: Spontaneous
  Country: PL (occurrence: PL)
  Receive Date: 20220331
  Receipt Date: 20220517
  Transmission Date: 20220721
  Serious: Yes (Hospitalization, Other)
  Sender: FDA-Public Use
  Company Number: PL-CELLTRION INC.-2022PL003876

PATIENT

DRUGS (11)
  1. INFLIXIMAB [Suspect]
     Active Substance: INFLIXIMAB
     Indication: Crohn^s disease
     Dosage: THIRD COURSE
     Route: 065
  2. INFLIXIMAB [Suspect]
     Active Substance: INFLIXIMAB
     Dosage: THIRD DOSE
     Route: 065
  3. PREDNISONE [Suspect]
     Active Substance: PREDNISONE
     Indication: Crohn^s disease
     Dosage: 20 MILLIGRAM, QD (IN ONE DOSE)
     Route: 065
  4. MESALAMINE [Suspect]
     Active Substance: MESALAMINE
     Indication: Crohn^s disease
     Dosage: 3 GRAM, QD (IN THREE DOSES)
     Route: 065
  5. MESALAMINE [Suspect]
     Active Substance: MESALAMINE
     Dosage: 3 G, TID (IN THREE DOSES)
     Route: 048
  6. MESALAMINE [Suspect]
     Active Substance: MESALAMINE
     Dosage: 1 DF
     Route: 048
  7. MESALAMINE [Suspect]
     Active Substance: MESALAMINE
     Dosage: 3 G, QD (IN THREE DOSES) (1 DOSAGE FORM QD)
     Route: 048
  8. ACENOCOUMAROL [Concomitant]
     Active Substance: ACENOCOUMAROL
     Indication: Anticoagulant therapy
     Dosage: UNK
     Route: 065
  9. ACENOCOUMAROL [Concomitant]
     Active Substance: ACENOCOUMAROL
     Dosage: 4 MG, QD
     Route: 048
  10. MESALAMINE [Concomitant]
     Active Substance: MESALAMINE
     Indication: Crohn^s disease
     Dosage: 3 G/ DAYS IN THREE DOSES
  11. PREDNISONE [Concomitant]
     Active Substance: PREDNISONE
     Indication: Crohn^s disease
     Dosage: 20 MG, QD (IN ONE DOSE)
     Route: 065

REACTIONS (9)
  - Coronary artery stenosis [Unknown]
  - Cerebral haematoma [Unknown]
  - Endocarditis [Recovering/Resolving]
  - Myocardial ischaemia [Unknown]
  - Septic cerebral embolism [Unknown]
  - Brain abscess [Unknown]
  - Endocarditis staphylococcal [Recovering/Resolving]
  - Staphylococcal infection [Unknown]
  - Pyrexia [Unknown]
